FAERS Safety Report 16158222 (Version 1)
Quarter: 2019Q2

REPORT INFORMATION
  Report Type: Spontaneous
  Country: US (occurrence: US)
  Receive Date: 20190404
  Receipt Date: 20190404
  Transmission Date: 20190711
  Serious: Yes (Death, Other)
  Sender: FDA-Public Use
  Company Number: US-GILEAD-2019-0399900

PATIENT
  Age: 65 Year
  Sex: Male
  Weight: 67.1 kg

DRUGS (1)
  1. YESCARTA [Suspect]
     Active Substance: AXICABTAGENE CILOLEUCEL
     Indication: DIFFUSE LARGE B-CELL LYMPHOMA
     Dosage: 2X10^8, SINGLE
     Route: 042
     Dates: start: 20190208, end: 20190208

REACTIONS (6)
  - Diffuse large B-cell lymphoma [Fatal]
  - Abdominal pain [Fatal]
  - Cytokine release syndrome [Fatal]
  - Neurotoxicity [Fatal]
  - Somnolence [Fatal]
  - Blood fibrinogen decreased [Fatal]

NARRATIVE: CASE EVENT DATE: 201902
